FAERS Safety Report 4410528-6 (Version None)
Quarter: 2004Q3

REPORT INFORMATION
  Report Type: 
  Country: None (occurrence: None)
  Receive Date: 20040726
  Receipt Date: 20040712
  Transmission Date: 20050211
  Serious: Yes (Death, Life-Threatening, Other)
  Sender: FDA-Public Use
  Company Number: 2004046737

PATIENT
  Age: 49 Year
  Sex: Male

DRUGS (5)
  1. FLUCONAZOLE [Suspect]
     Indication: PROPHYLAXIS
     Dosage: 100 MG (100 MG, 1 IN 1 D), INTRAVENOUS
     Route: 042
  2. METHOTREXATE [Suspect]
     Indication: PROPHYLAXIS
  3. CYCLOSPORINE [Suspect]
     Indication: PROPHYLAXIS
  4. VANCOMYCIN [Suspect]
     Indication: ILL-DEFINED DISORDER
  5. AMPHOTERICIN B [Suspect]
     Indication: ZYGOMYCOSIS
     Dosage: (5 MG/KG, 1 IN 1 D), INTRAVENOUS
     Route: 042

REACTIONS (19)
  - ANGIOPATHY [None]
  - BONE MARROW TRANSPLANT REJECTION [None]
  - BRONCHOALVEOLAR LAVAGE ABNORMAL [None]
  - CANDIDIASIS [None]
  - COMPUTERISED TOMOGRAM ABNORMAL [None]
  - CULTURE STOOL POSITIVE [None]
  - GRAFT VERSUS HOST DISEASE [None]
  - LIVER DISORDER [None]
  - MULTI-ORGAN FAILURE [None]
  - NECROSIS [None]
  - NEPHROPATHY TOXIC [None]
  - PANCYTOPENIA [None]
  - PLEURAL EFFUSION [None]
  - PNEUMONITIS [None]
  - RENAL FAILURE [None]
  - RESPIRATORY FAILURE [None]
  - SPLENIC INFARCTION [None]
  - WHITE BLOOD CELL COUNT DECREASED [None]
  - ZYGOMYCOSIS [None]
